FAERS Safety Report 21917151 (Version 1)
Quarter: 2023Q1

REPORT INFORMATION
  Report Type: Spontaneous
  Country: None (occurrence: GB)
  Receive Date: 20230126
  Receipt Date: 20230126
  Transmission Date: 20230418
  Serious: Yes (Other)
  Sender: FDA-Public Use
  Company Number: GB-B.Braun Medical Inc.-2137046

PATIENT
  Age: 89 Year
  Sex: Male

DRUGS (4)
  1. ACETAMINOPHEN [Suspect]
     Active Substance: ACETAMINOPHEN
  2. ESOMEPRAZOLE. [Suspect]
     Active Substance: ESOMEPRAZOLE MAGNESIUM
  3. METOCLOPRAMIDE [Suspect]
     Active Substance: METOCLOPRAMIDE
  4. NEFOPAM [Suspect]
     Active Substance: NEFOPAM

REACTIONS (1)
  - Hallucination, visual [Unknown]
